FAERS Safety Report 19651250 (Version 1)
Quarter: 2021Q3

REPORT INFORMATION
  Report Type: Report from Study
  Country: ES (occurrence: ES)
  Receive Date: 20210803
  Receipt Date: 20210803
  Transmission Date: 20211014
  Serious: Yes (Hospitalization)
  Sender: FDA-Public Use
  Company Number: ES-TEVA-2021-ES-1938478

PATIENT
  Age: 58 Year
  Sex: Male

DRUGS (6)
  1. METILPREDNISOLONA (888A) [Suspect]
     Active Substance: METHYLPREDNISOLONE
     Dosage: 125MG
     Route: 042
     Dates: start: 20200326, end: 20200328
  2. TOCILIZUMAB (8289A) [Suspect]
     Active Substance: TOCILIZUMAB
     Indication: COVID-19
     Dosage: 560MG
     Route: 042
     Dates: start: 20200328, end: 20200328
  3. LOPINAVIR + RITONAVIR [Suspect]
     Active Substance: LOPINAVIR\RITONAVIR
     Indication: COVID-19
     Dosage: 800MG
     Route: 048
     Dates: start: 20200325, end: 20200401
  4. HIDROXICLOROQUINA SULFATO (2143SU) [Suspect]
     Active Substance: HYDROXYCHLOROQUINE SULFATE
     Indication: COVID-19
     Dosage: 3.2GM
     Route: 048
     Dates: start: 20200325, end: 20200331
  5. AMOXICILINA + ACIDO CLAVULANICO [Suspect]
     Active Substance: AMOXICILLIN\CLAVULANIC ACID
     Dosage: 3GM
     Route: 042
     Dates: start: 20200325, end: 20200401
  6. INTERFERON BETA?1B (30559A) [Suspect]
     Active Substance: INTERFERON BETA-1B
     Indication: COVID-19
     Dosage: 4MU
     Route: 058
     Dates: start: 20200325, end: 20200326

REACTIONS (1)
  - Mixed liver injury [Recovered/Resolved]

NARRATIVE: CASE EVENT DATE: 20200329
